APPROVED DRUG PRODUCT: SOMA COMPOUND
Active Ingredient: ASPIRIN; CARISOPRODOL
Strength: 325MG;200MG **Federal Register determination that product was not discontinued or withdrawn for safety or effectiveness reasons**
Dosage Form/Route: TABLET;ORAL
Application: N012365 | Product #005
Applicant: MEDA PHARMACEUTICALS MEDA PHARMACEUTICALS INC
Approved: Jul 11, 1983 | RLD: No | RS: No | Type: DISCN